FAERS Safety Report 4326434-1 (Version None)
Quarter: 2004Q1

REPORT INFORMATION
  Report Type: 
  Country: None (occurrence: None)
  Receive Date: 20040323
  Receipt Date: 20031209
  Transmission Date: 20041129
  Serious: Yes (Hospitalization)
  Sender: FDA-Public Use
  Company Number: M03-341-183

PATIENT
  Sex: Female

DRUGS (2)
  1. VELCADE [Suspect]
     Indication: MULTIPLE MYELOMA
     Dosage: 1.0 MG/M2 BIW:INTRAVENOUS (NOT OTHERWISE SPECIFIED)
     Route: 042
     Dates: start: 20031106
  2. ANTIHYPERTENSIVES [Concomitant]

REACTIONS (2)
  - DIARRHOEA [None]
  - HYPOTENSION [None]
